FAERS Safety Report 7781294-1 (Version None)
Quarter: 2011Q3

REPORT INFORMATION
  Report Type: 
  Country: None (occurrence: None)
  Receive Date: 20110927
  Receipt Date: 20110923
  Transmission Date: 20111222
  Serious: Yes (Other)
  Sender: FDA-Public Use
  Company Number: BR-PFIZER INC-2011228736

PATIENT
  Sex: Female

DRUGS (3)
  1. DAFORIN [Concomitant]
     Dosage: 20 MG, UNK
  2. ANAFRANIL [Concomitant]
     Dosage: 25 MG, UNK
  3. ALPRAZOLAM [Suspect]
     Dosage: ONE TABLET 25 (AT NIGHT)
     Route: 048
     Dates: start: 20050101

REACTIONS (1)
  - PERIPHERAL SENSORY NEUROPATHY [None]
